FAERS Safety Report 24726208 (Version 1)
Quarter: 2024Q4

REPORT INFORMATION
  Report Type: Spontaneous
  Country: US (occurrence: None)
  Receive Date: 20241211
  Receipt Date: 20241211
  Transmission Date: 20250114
  Serious: Yes (Hospitalization)
  Sender: Public
  Company Number: None

PATIENT
  Age: 61 Year
  Sex: Male
  Weight: 85 kg

DRUGS (4)
  1. EMPAGLIFLOZIN [Suspect]
     Active Substance: EMPAGLIFLOZIN
     Indication: Diabetes mellitus
     Dosage: 12.50 MG DAILY ORAL
     Route: 048
     Dates: end: 20230724
  2. ALOGLIPTIN [Suspect]
     Active Substance: ALOGLIPTIN
  3. METFORMIN [Suspect]
     Active Substance: METFORMIN HYDROCHLORIDE
  4. PIOGLITAZONE [Suspect]
     Active Substance: PIOGLITAZONE

REACTIONS (13)
  - Blood bicarbonate decreased [None]
  - Anion gap increased [None]
  - Hypokalaemia [None]
  - Euglycaemic diabetic ketoacidosis [None]
  - Dyspnoea [None]
  - Polydipsia [None]
  - Polyuria [None]
  - Fatigue [None]
  - Nausea [None]
  - Electrocardiogram T wave inversion [None]
  - Atrial fibrillation [None]
  - Atrial flutter [None]
  - Hypophagia [None]

NARRATIVE: CASE EVENT DATE: 20230724
